FAERS Safety Report 24707206 (Version 2)
Quarter: 2025Q1

REPORT INFORMATION
  Report Type: Other
  Country: US (occurrence: US)
  Receive Date: 20241206
  Receipt Date: 20250226
  Transmission Date: 20250408
  Serious: Yes (Death, Other)
  Sender: GLENMARK
  Company Number: US-GLENMARK PHARMACEUTICALS-2024GMK095915

PATIENT

DRUGS (1)
  1. POTASSIUM CHLORIDE EXTENDED RELEASE [Suspect]
     Active Substance: POTASSIUM CHLORIDE
     Indication: Product used for unknown indication
     Dosage: UNK, BID
     Route: 048

REACTIONS (3)
  - Death [Fatal]
  - Recalled product administered [Unknown]
  - Recalled product [Unknown]
